FAERS Safety Report 15295222 (Version 1)
Quarter: 2018Q3

REPORT INFORMATION
  Report Type: Report from Study
  Country: US (occurrence: US)
  Receive Date: 20180820
  Receipt Date: 20180820
  Transmission Date: 20181010
  Serious: Yes (Other)
  Sender: FDA-Public Use
  Company Number: US-MYLANLABS-2018M1061340

PATIENT
  Age: 19 Year

DRUGS (3)
  1. GEMCITABINE [Suspect]
     Active Substance: GEMCITABINE\GEMCITABINE HYDROCHLORIDE
     Indication: OSTEOSARCOMA
     Dosage: 1000 MG/M2, IN NORMAL SALINE INFUSED OVER 60 MIN ON DAYS 1 AND 15 EVERY 28 DAYS
     Route: 041
  2. PACLITAXEL. [Suspect]
     Active Substance: PACLITAXEL
     Indication: OSTEOSARCOMA
     Dosage: 125 MG/M2, ADMINISTERED IN NORMAL SALINE INFUSED OVER 30 MIN ON DAYS 1 AND 15 EVERY 28 DAYS
     Route: 041
  3. NORMAL SALINE [Concomitant]
     Active Substance: SODIUM CHLORIDE
     Indication: PRODUCT USED FOR UNKNOWN INDICATION
     Route: 041

REACTIONS (3)
  - Weight decreased [Unknown]
  - Anaemia [Unknown]
  - Neutropenia [Unknown]
